FAERS Safety Report 16036398 (Version 2)
Quarter: 2020Q3

REPORT INFORMATION
  Report Type: Spontaneous
  Country: US (occurrence: US)
  Receive Date: 20190305
  Receipt Date: 20200929
  Transmission Date: 20201102
  Serious: Yes (Hospitalization)
  Sender: FDA-Public Use
  Company Number: US-JNJFOC-20190238640

PATIENT
  Age: 80 Year
  Sex: Female

DRUGS (1)
  1. DARZALEX [Suspect]
     Active Substance: DARATUMUMAB
     Indication: PLASMA CELL MYELOMA
     Dosage: FREQUENCY WAS REPORTED AS WEEK 1 DAY 1 AND DARATUMUMAB WAS DOSED IN 1000 ML SALINE SOLUTION.
     Route: 042

REACTIONS (3)
  - Back pain [Unknown]
  - Infusion related reaction [Unknown]
  - Respiratory distress [Unknown]
